FAERS Safety Report 5322012-6 (Version None)
Quarter: 2007Q2

REPORT INFORMATION
  Report Type: 
  Country: None (occurrence: None)
  Receive Date: 20070508
  Receipt Date: 20070508
  Transmission Date: 20071010
  Serious: Yes (Other)
  Sender: FDA-Public Use
  Company Number: None

PATIENT
  Age: 4 Year
  Sex: Female
  Weight: 19.0511 kg

DRUGS (1)
  1. CHILDREN'S BENADRYL ALLERGY DIPHENHYDRAMINE HCI PFIZER 12.5 MG [Suspect]
     Indication: HYPERSENSITIVITY
     Dosage: 1 TAB- 12.5 MG DIPHENHYDRAMINE 1-2 EVERY 4-6 HRS PO
     Route: 048
     Dates: start: 20070427, end: 20070428

REACTIONS (5)
  - DRUG HYPERSENSITIVITY [None]
  - MYDRIASIS [None]
  - OVERDOSE [None]
  - TREATMENT NONCOMPLIANCE [None]
  - VISUAL DISTURBANCE [None]
